FAERS Safety Report 7642011-9 (Version None)
Quarter: 2011Q3

REPORT INFORMATION
  Report Type: 
  Country: None (occurrence: None)
  Receive Date: 20110728
  Receipt Date: 20110727
  Transmission Date: 20111222
  Serious: Yes (Other)
  Sender: FDA-Public Use
  Company Number: US-PFIZER INC-2011159015

PATIENT
  Sex: Female
  Weight: 66.213 kg

DRUGS (6)
  1. MORPHINE [Suspect]
     Indication: PAIN
     Dosage: UNK
  2. CHANTIX [Suspect]
     Dosage: 0.5 MG, 2X/DAY
     Route: 048
  3. VALIUM [Concomitant]
     Dosage: UNK
  4. CHANTIX [Suspect]
     Indication: SMOKING CESSATION THERAPY
     Dosage: 0.5 MG, 1X/DAY
     Route: 048
  5. CHANTIX [Suspect]
     Dosage: UNK
     Route: 048
  6. DILAUDID [Concomitant]
     Dosage: 8 MG, EVERY 4 HOURS

REACTIONS (3)
  - WHEEZING [None]
  - VITAMIN D DECREASED [None]
  - HYPOTHYROIDISM [None]
